FAERS Safety Report 5632553-X (Version None)
Quarter: 2008Q1

REPORT INFORMATION
  Report Type: 
  Country: None (occurrence: None)
  Receive Date: 20080131
  Receipt Date: 20071018
  Transmission Date: 20080703
  Serious: No
  Sender: FDA-Public Use
  Company Number: 163-21880-07100544

PATIENT
  Age: 58 Year
  Sex: Male

DRUGS (12)
  1. REVLIMID [Suspect]
     Indication: MULTIPLE MYELOMA
     Dosage: 15 MG, DAILY FOR 14 DAYS ON 7 DAYS OFF, ORAL ; 25 MG, DAILY FOR 14 DAYS ON, 7 DAYS OFF, ORAL
     Route: 048
     Dates: start: 20070723, end: 20070801
  2. REVLIMID [Suspect]
     Indication: MULTIPLE MYELOMA
     Dosage: 15 MG, DAILY FOR 14 DAYS ON 7 DAYS OFF, ORAL ; 25 MG, DAILY FOR 14 DAYS ON, 7 DAYS OFF, ORAL
     Route: 048
     Dates: start: 20070820, end: 20071005
  3. DURAGESIC-100 [Concomitant]
  4. DECADRON [Concomitant]
  5. ASPIRIN [Concomitant]
  6. PERCOCET [Concomitant]
  7. PRILOSEC [Concomitant]
  8. MORPHINE [Concomitant]
  9. CULTURELLE (CULTURELLE) [Concomitant]
  10. CELEBREX [Concomitant]
  11. VELCADE [Concomitant]
  12. REPLIVA [Concomitant]

REACTIONS (2)
  - ABDOMINAL PAIN [None]
  - HEADACHE [None]
